FAERS Safety Report 7783332-9 (Version None)
Quarter: 2011Q3

REPORT INFORMATION
  Report Type: 
  Country: None (occurrence: None)
  Receive Date: 20110926
  Receipt Date: 20110909
  Transmission Date: 20111222
  Serious: Yes (Hospitalization)
  Sender: FDA-Public Use
  Company Number: 019663

PATIENT
  Age: 53 Year
  Sex: Female
  Weight: 62 kg

DRUGS (10)
  1. PEGAPTANIB SODIUM;PLACEBO (PEGAPTANIB SODIUM) UNKNOWN [Suspect]
     Indication: DIABETIC RETINAL OEDEMA
     Dosage: 0.3 MG
     Dates: start: 20110812, end: 20110812
  2. GLUCOBAY [Concomitant]
  3. ACTOS [Concomitant]
  4. RANITIDINE HYDROCHLORIDE [Concomitant]
  5. LOSARTAN POTASSIUM [Concomitant]
  6. AMARYL [Concomitant]
  7. LIVALO (ITAVASTATIN) [Concomitant]
  8. BROMFENAC SODIUM (BROMFENAC SODIUM) [Concomitant]
  9. LEVOFLOXACIN [Concomitant]
  10. FLUOROMETHOLONE [Concomitant]

REACTIONS (3)
  - INTRAOCULAR PRESSURE INCREASED [None]
  - HYPHAEMA [None]
  - SUDDEN HEARING LOSS [None]
